FAERS Safety Report 13818160 (Version 1)
Quarter: 2017Q3

REPORT INFORMATION
  Report Type: Spontaneous
  Country: US (occurrence: US)
  Receive Date: 20170731
  Receipt Date: 20170731
  Transmission Date: 20171127
  Serious: Yes (Disabling, Other)
  Sender: FDA-Public Use
  Company Number: US-ROCHE-641134

PATIENT
  Age: 63 Year
  Sex: Female
  Weight: 122.9 kg

DRUGS (9)
  1. OXYIR [Concomitant]
     Active Substance: OXYCODONE HYDROCHLORIDE
     Indication: PAIN
     Dosage: AS NEEDED
     Route: 048
  2. BONIVA [Suspect]
     Active Substance: IBANDRONATE SODIUM
     Indication: OSTEOPOROSIS
     Dosage: IV PUSH; DOSE: 3 MG/ML
     Route: 042
  3. DIOVAN HCT [Concomitant]
     Active Substance: HYDROCHLOROTHIAZIDE\VALSARTAN
     Indication: HYPERTENSION
     Dosage: DRUG REPORTED AS DIOVAN/HCTZ; DOSE: 160/25MG DAILY
     Route: 048
  4. SYMBICORT [Concomitant]
     Active Substance: BUDESONIDE\FORMOTEROL FUMARATE DIHYDRATE
     Route: 065
  5. LEXAPRO [Concomitant]
     Active Substance: ESCITALOPRAM OXALATE
     Indication: ANXIETY
     Route: 048
  6. MS CONTIN [Concomitant]
     Active Substance: MORPHINE SULFATE
     Indication: PAIN
     Route: 048
  7. MELOXICAM. [Concomitant]
     Active Substance: MELOXICAM
     Indication: PAIN
     Route: 048
  8. CLONAZEPAM. [Concomitant]
     Active Substance: CLONAZEPAM
     Route: 065
  9. MOBIC [Concomitant]
     Active Substance: MELOXICAM
     Route: 065

REACTIONS (8)
  - Arthralgia [Unknown]
  - Injection site swelling [Unknown]
  - Pyrexia [Unknown]
  - Headache [Unknown]
  - Injection site inflammation [Recovering/Resolving]
  - Peripheral swelling [Unknown]
  - Injection site erythema [Unknown]
  - Back pain [Unknown]

NARRATIVE: CASE EVENT DATE: 20090619
